FAERS Safety Report 18118946 (Version 3)
Quarter: 2020Q4

REPORT INFORMATION
  Report Type: Other
  Country: JP (occurrence: JP)
  Receive Date: 20200806
  Receipt Date: 20201014
  Transmission Date: 20210113
  Serious: Yes (Death)
  Sender: FDA-Public Use
  Company Number: JP-ROCHE-2653393

PATIENT
  Age: 84 Year
  Sex: Male
  Weight: 45 kg

DRUGS (2)
  1. TOCILIZUMAB. [Suspect]
     Active Substance: TOCILIZUMAB
     Indication: CASTLEMAN^S DISEASE
     Route: 065
  2. ROMIPLOSTIM [Concomitant]
     Active Substance: ROMIPLOSTIM
     Indication: THROMBOCYTOPENIA

REACTIONS (3)
  - Intentional product use issue [Unknown]
  - Pneumonia aspiration [Fatal]
  - Off label use [Unknown]
